FAERS Safety Report 15398080 (Version 2)
Quarter: 2018Q4

REPORT INFORMATION
  Report Type: Spontaneous
  Country: FR (occurrence: FR)
  Receive Date: 20180918
  Receipt Date: 20181031
  Transmission Date: 20190204
  Serious: Yes (Hospitalization)
  Sender: FDA-Public Use
  Company Number: FR-TEVA-2018-FR-955739

PATIENT
  Age: 88 Year
  Sex: Female
  Weight: 65 kg

DRUGS (5)
  1. AMOXICILLINE ACIDE CLAVULANIQUE SANDOZ [Suspect]
     Active Substance: AMOXICILLIN\CLAVULANATE POTASSIUM
     Indication: INFECTION
     Dosage: 3 GRAM DAILY;
     Route: 048
     Dates: start: 20180622, end: 20180626
  2. COUMADINE [Suspect]
     Active Substance: WARFARIN SODIUM
     Indication: ATRIAL FIBRILLATION
     Route: 048
     Dates: end: 20180625
  3. AMOXICILLINE [Suspect]
     Active Substance: AMOXICILLIN
     Indication: PYELONEPHRITIS ACUTE
     Dosage: 3 DOSAGE FORMS DAILY;
     Route: 048
     Dates: start: 20180622, end: 20180626
  4. PAROXETINE. [Suspect]
     Active Substance: PAROXETINE
     Indication: DEPRESSION
     Dosage: 10 MILLIGRAM DAILY;
     Route: 048
     Dates: start: 20180621, end: 20180627
  5. ACIDE CLAVULANIQUE [Suspect]
     Active Substance: CLAVULANIC ACID
     Indication: PYELONEPHRITIS ACUTE
     Dosage: 375 MILLIGRAM DAILY;
     Route: 048
     Dates: start: 20180622, end: 20180626

REACTIONS (2)
  - Epistaxis [Recovered/Resolved]
  - International normalised ratio increased [Recovered/Resolved]

NARRATIVE: CASE EVENT DATE: 20180625
